FAERS Safety Report 24675231 (Version 1)
Quarter: 2024Q4

REPORT INFORMATION
  Report Type: Spontaneous
  Country: US (occurrence: US)
  Receive Date: 20241128
  Receipt Date: 20241128
  Transmission Date: 20250115
  Serious: No
  Sender: GLAND PHARMA LTD
  Company Number: US-GLANDPHARMA-US-2024GLNSPO00989

PATIENT

DRUGS (2)
  1. DOCETAXEL [Suspect]
     Active Substance: DOCETAXEL
     Indication: White blood cell count abnormal
     Route: 065
  2. CYCLOPHOSPHAMIDE [Suspect]
     Active Substance: CYCLOPHOSPHAMIDE
     Indication: White blood cell count abnormal
     Route: 065

REACTIONS (5)
  - Feeling abnormal [Unknown]
  - Bone pain [Unknown]
  - Presyncope [Unknown]
  - Diarrhoea [Unknown]
  - Product use in unapproved indication [Unknown]
